FAERS Safety Report 7033998-6 (Version None)
Quarter: 2010Q4

REPORT INFORMATION
  Report Type: 
  Country: None (occurrence: None)
  Receive Date: 20101006
  Receipt Date: 20100923
  Transmission Date: 20110411
  Serious: Yes (Hospitalization, Other)
  Sender: FDA-Public Use
  Company Number: 20100459

PATIENT
  Age: 24 Year
  Sex: Female

DRUGS (1)
  1. VENOFER [Suspect]
     Dosage: INTRAVENOUS
     Route: 042
     Dates: start: 20100720, end: 20100720

REACTIONS (4)
  - CYANOSIS [None]
  - HYPERSENSITIVITY [None]
  - LARYNGEAL OEDEMA [None]
  - RASH [None]
